FAERS Safety Report 5239717-8 (Version None)
Quarter: 2007Q1

REPORT INFORMATION
  Report Type: 
  Country: None (occurrence: None)
  Receive Date: 20070214
  Receipt Date: 20070214
  Transmission Date: 20070707
  Serious: Yes (Hospitalization)
  Sender: FDA-Public Use
  Company Number: None

PATIENT
  Sex: Male
  Weight: 80.4681 kg

DRUGS (1)
  1. AZATHIOPRINE [Suspect]
     Indication: CROHN'S DISEASE
     Dosage: 50 MG DAILY PO
     Route: 048
     Dates: start: 20061120, end: 20061230

REACTIONS (14)
  - ABDOMINAL DISTENSION [None]
  - ABDOMINAL PAIN [None]
  - ABSCESS [None]
  - BLOOD AMYLASE INCREASED [None]
  - CHOLELITHIASIS [None]
  - DYSPHAGIA [None]
  - FLATULENCE [None]
  - GALLBLADDER POLYP [None]
  - LIPASE INCREASED [None]
  - ORAL INTAKE REDUCED [None]
  - RETCHING [None]
  - SENSATION OF FOREIGN BODY [None]
  - THIRST [None]
  - WEIGHT DECREASED [None]
